FAERS Safety Report 6022495-2 (Version None)
Quarter: 2008Q4

REPORT INFORMATION
  Report Type: 
  Country: None (occurrence: None)
  Receive Date: 20081230
  Receipt Date: 20081218
  Transmission Date: 20090506
  Serious: Yes (Death)
  Sender: FDA-Public Use
  Company Number: PHHY2008DE23100

PATIENT
  Sex: Female

DRUGS (7)
  1. EXELON [Suspect]
     Route: 062
  2. NORTRIPTYLINE HCL [Concomitant]
     Dosage: 20 MG/DAY
  3. PIPAMPERONE [Concomitant]
     Dosage: 40MG/DAY
  4. MIRTAZAPINE [Concomitant]
     Dosage: 15MG/DAY
  5. MEMANTINE HCL [Concomitant]
     Dosage: 10MG/DAY
  6. RAMIPRIL [Concomitant]
     Dosage: 5MG/DAY
  7. ASPIRIN [Concomitant]
     Dosage: 100MG/DAY

REACTIONS (2)
  - BLOOD PRESSURE FLUCTUATION [None]
  - DEATH [None]
